FAERS Safety Report 6450015-7 (Version None)
Quarter: 2009Q4

REPORT INFORMATION
  Report Type: 
  Country: None (occurrence: None)
  Receive Date: 20091123
  Receipt Date: 20091116
  Transmission Date: 20100525
  Serious: Yes (Other)
  Sender: FDA-Public Use
  Company Number: US-JNJFOC-20091104783

PATIENT
  Sex: Female

DRUGS (4)
  1. TOPAMAX [Suspect]
     Dosage: 2 IN THE EVENING
     Route: 048
  2. TOPAMAX [Suspect]
     Dosage: 1 IN AFTERNOON
     Route: 048
  3. TOPAMAX [Suspect]
     Dosage: 2 IN MORNING
     Route: 048
  4. TOPAMAX [Suspect]
     Indication: CONVULSION
     Route: 048

REACTIONS (4)
  - DYSPNOEA [None]
  - HYPERVENTILATION [None]
  - INSOMNIA [None]
  - TUNNEL VISION [None]
